FAERS Safety Report 15740991 (Version 1)
Quarter: 2018Q4

REPORT INFORMATION
  Report Type: Spontaneous
  Country: HU (occurrence: HU)
  Receive Date: 20181219
  Receipt Date: 20181219
  Transmission Date: 20190205
  Serious: Yes (Hospitalization)
  Sender: FDA-Public Use
  Company Number: HU-SAKK-2018SA341435AA

PATIENT
  Age: 16 Year
  Sex: Male

DRUGS (11)
  1. PROGRAF [Concomitant]
     Active Substance: TACROLIMUS\TACROLIMUS ANHYDROUS
     Indication: LUNG TRANSPLANT
     Dosage: 2 MG, BID
     Route: 048
  2. LOSEC [OMEPRAZOLE] [Concomitant]
     Indication: PROPHYLAXIS AGAINST GASTROINTESTINAL ULCER
     Dosage: 10 MG, QD
     Route: 048
  3. MEDROL [METHYLPREDNISOLONE] [Concomitant]
     Dosage: 10 MG, QD
     Route: 048
  4. CLEXANE [Suspect]
     Active Substance: ENOXAPARIN SODIUM
     Indication: THROMBOSIS IN DEVICE
     Dosage: 1200 IU, BID
     Route: 058
     Dates: start: 20181023
  5. CLEXANE [Suspect]
     Active Substance: ENOXAPARIN SODIUM
     Dosage: 1600 IU, BID
     Route: 058
  6. VITAMIN C [Concomitant]
     Active Substance: ASCORBIC ACID
     Indication: VITAMIN SUPPLEMENTATION
     Dosage: 200 MG, QD
     Route: 048
  7. VIGANTOL [COLECALCIFEROL] [Concomitant]
     Indication: VITAMIN SUPPLEMENTATION
     Dosage: 2 GTT DROPS, QD
     Route: 048
  8. SUMETROLIM [Concomitant]
     Active Substance: SULFAMETHOXAZOLE\TRIMETHOPRIM
     Indication: ANTIFUNGAL PROPHYLAXIS
     Dosage: 0.5 DF
     Route: 048
  9. SMOFKABIVEN [Concomitant]
     Active Substance: AMINO ACIDS\DEXTROSE\ELECTROLYTES NOS\SOYBEAN OIL
     Dosage: 986 ML, UNK
     Route: 042
  10. CALCIMUSC [Concomitant]
     Active Substance: CALCIUM GLUCONATE
     Dosage: 2.5 ML, UNK
     Route: 048
  11. CELLCEPT [Concomitant]
     Active Substance: MYCOPHENOLATE MOFETIL\MYCOPHENOLATE MOFETIL HYDROCHLORIDE
     Indication: LUNG TRANSPLANT
     Dosage: 250 MG, QD
     Route: 048

REACTIONS (3)
  - Dizziness [Not Recovered/Not Resolved]
  - Memory impairment [Unknown]
  - Altered state of consciousness [Recovered/Resolved]

NARRATIVE: CASE EVENT DATE: 20181023
